FAERS Safety Report 19512478 (Version 3)
Quarter: 2023Q2

REPORT INFORMATION
  Report Type: Spontaneous
  Country: HU (occurrence: HU)
  Receive Date: 20210709
  Receipt Date: 20230601
  Transmission Date: 20230722
  Serious: Yes (Other)
  Sender: FDA-Public Use
  Company Number: HU-AMGEN-HUNSP2021003277

PATIENT
  Age: 11 Year
  Sex: Male

DRUGS (3)
  1. ADALIMUMAB [Suspect]
     Active Substance: ADALIMUMAB
     Indication: Rash pustular
     Dosage: UNK
     Route: 065
  2. ADALIMUMAB [Suspect]
     Active Substance: ADALIMUMAB
     Indication: Crohn^s disease
  3. INFLIXIMAB [Suspect]
     Active Substance: INFLIXIMAB
     Indication: Rash pustular
     Dosage: UNK
     Route: 065

REACTIONS (10)
  - Skin mass [Unknown]
  - Conjunctival ulcer [Unknown]
  - Crohn^s disease [Recovering/Resolving]
  - Drug ineffective for unapproved indication [Unknown]
  - Off label use [Unknown]
  - Rash pustular [Unknown]
  - Aphthous ulcer [Unknown]
  - Eye symptom [Unknown]
  - Skin disorder [Unknown]
  - Pyrexia [Unknown]
